FAERS Safety Report 5310998-5 (Version None)
Quarter: 2007Q2

REPORT INFORMATION
  Report Type: 
  Country: None (occurrence: None)
  Receive Date: 20070430
  Receipt Date: 20070419
  Transmission Date: 20071010
  Serious: Yes (Other)
  Sender: FDA-Public Use
  Company Number: US-JNJFOC-20070401518

PATIENT
  Sex: Female

DRUGS (4)
  1. REMICADE [Suspect]
     Indication: RHEUMATOID ARTHRITIS
     Dosage: ON FOR 3-4 YEARS
     Route: 042
  2. ALEVE [Concomitant]
  3. SINGULAIR [Concomitant]
  4. M.V.I. [Concomitant]

REACTIONS (1)
  - GLOMERULONEPHRITIS PROLIFERATIVE [None]
